FAERS Safety Report 16661430 (Version 5)
Quarter: 2019Q4

REPORT INFORMATION
  Report Type: Spontaneous
  Country: US (occurrence: US)
  Receive Date: 20190802
  Receipt Date: 20191211
  Transmission Date: 20200122
  Serious: No
  Sender: FDA-Public Use
  Company Number: US-PFIZER INC-2019294496

PATIENT
  Age: 49 Year
  Sex: Male
  Weight: 65.76 kg

DRUGS (2)
  1. LYRICA [Suspect]
     Active Substance: PREGABALIN
     Indication: FIBROMYALGIA
     Dosage: 150 MG, 3X/DAY (THREE TIMES A DAY)
     Route: 048
  2. CYCLOBENZAPRINE. [Concomitant]
     Active Substance: CYCLOBENZAPRINE
     Dosage: 10 MG, UNK

REACTIONS (14)
  - Decreased appetite [Unknown]
  - Adjustment disorder with depressed mood [Unknown]
  - Weight decreased [Unknown]
  - Disturbance in attention [Unknown]
  - Arthralgia [Unknown]
  - Constipation [Unknown]
  - Malaise [Unknown]
  - Anxiety [Unknown]
  - Hypersomnia [Unknown]
  - Withdrawal syndrome [Unknown]
  - Headache [Unknown]
  - Expired product administered [Unknown]
  - Visual impairment [Recovering/Resolving]
  - Asthenia [Unknown]
